FAERS Safety Report 9818905 (Version 1)
Quarter: 2014Q1

REPORT INFORMATION
  Report Type: Spontaneous
  Country: US (occurrence: US)
  Receive Date: 20140115
  Receipt Date: 20140115
  Transmission Date: 20141002
  Serious: Yes (Other)
  Sender: FDA-Public Use
  Company Number: US-PFIZER INC-2014008245

PATIENT
  Age: 58 Year
  Sex: Female

DRUGS (1)
  1. ADRIAMYCIN [Suspect]
     Indication: NEOPLASM MALIGNANT
     Dosage: 600 MG/ML
     Route: 042
     Dates: start: 200506, end: 2005

REACTIONS (1)
  - Tooth loss [Unknown]
